FAERS Safety Report 25594517 (Version 1)
Quarter: 2025Q3

REPORT INFORMATION
  Report Type: Spontaneous
  Country: EU (occurrence: EU)
  Receive Date: 20250723
  Receipt Date: 20250723
  Transmission Date: 20251021
  Serious: Yes (Other)
  Sender: UCB
  Company Number: None

PATIENT
  Age: 34 Year
  Sex: Male

DRUGS (2)
  1. BIMZELX [Suspect]
     Active Substance: BIMEKIZUMAB-BKZX
     Indication: Hidradenitis
     Dosage: 320 MILLIGRAM, WEEKLY (QW)
     Route: 058
     Dates: start: 20241205
  2. DAPSONE [Concomitant]
     Active Substance: DAPSONE
     Indication: Hidradenitis
     Route: 048
     Dates: start: 20220808

REACTIONS (3)
  - Dermatitis psoriasiform [Recovering/Resolving]
  - Blepharitis [Recovering/Resolving]
  - Eczema [Recovering/Resolving]

NARRATIVE: CASE EVENT DATE: 20250201
